FAERS Safety Report 5314299-0 (Version None)
Quarter: 2007Q2

REPORT INFORMATION
  Report Type: 
  Country: None (occurrence: None)
  Receive Date: 20070425
  Receipt Date: 20070417
  Transmission Date: 20071010
  Serious: Yes (Life-Threatening, Other)
  Sender: FDA-Public Use
  Company Number: 07H-163-0312458-00

PATIENT
  Age: 35 Year
  Sex: Male
  Weight: 108.8633 kg

DRUGS (19)
  1. HYDROMORPHONE HCL [Suspect]
     Indication: ANALGESIC EFFECT
     Dosage: SEE IMAGE
     Route: 042
     Dates: start: 20070410, end: 20070411
  2. HYDROMORPHONE HCL [Suspect]
     Indication: ANALGESIC EFFECT
     Dosage: SEE IMAGE
     Route: 042
     Dates: start: 20070411, end: 20070411
  3. HYDROMORPHONE HCL [Suspect]
     Indication: ANALGESIC EFFECT
     Dosage: SEE IMAGE
     Route: 042
     Dates: start: 20070411, end: 20070411
  4. HYDROMORPHONE HCL [Suspect]
     Indication: ANALGESIC EFFECT
     Dosage: SEE IMAGE
     Route: 042
     Dates: start: 20070412, end: 20070412
  5. HYDROMORPHONE HCL [Suspect]
     Indication: ANALGESIC EFFECT
     Dosage: SEE IMAGE
     Route: 042
     Dates: start: 20070412, end: 20070412
  6. HYDROMORPHONE HCL [Suspect]
     Indication: ANALGESIC EFFECT
     Dosage: SEE IMAGE
     Route: 042
     Dates: start: 20070412, end: 20070412
  7. HYDROMORPHONE HCL [Suspect]
     Indication: ANALGESIC EFFECT
     Dosage: SEE IMAGE
     Route: 042
     Dates: start: 20070412, end: 20070412
  8. HYDROMORPHONE HCL [Suspect]
     Indication: ANALGESIC EFFECT
     Dosage: SEE IMAGE
     Route: 042
     Dates: start: 20070412, end: 20070412
  9. HYDROMORPHONE HCL [Suspect]
     Indication: ANALGESIC EFFECT
     Dosage: SEE IMAGE
     Route: 042
     Dates: start: 20070412, end: 20070412
  10. SONATA [Concomitant]
  11. ACETAMINOPHEN [Concomitant]
  12. ALPRAZOLAM [Concomitant]
  13. CIPROFLOXACIN [Concomitant]
  14. LACTBACILLUS GG [Concomitant]
  15. HEPARIN [Concomitant]
  16. METROPROLOL (METOPROLOL) [Concomitant]
  17. METRONIDAZOLE [Concomitant]
  18. NICOTINE [Concomitant]
  19. NEUTROPHOS PACK [Concomitant]

REACTIONS (4)
  - ANOXIC ENCEPHALOPATHY [None]
  - CARDIO-RESPIRATORY ARREST [None]
  - CONVULSION [None]
  - LOSS OF CONSCIOUSNESS [None]
